FAERS Safety Report 8461079-3 (Version None)
Quarter: 2012Q2

REPORT INFORMATION
  Report Type: 
  Country: None (occurrence: None)
  Receive Date: 20120625
  Receipt Date: 20120612
  Transmission Date: 20120825
  Serious: No
  Sender: FDA-Public Use
  Company Number: US-BIOGENIDEC-2012BI020978

PATIENT
  Age: 58 Year
  Sex: Male

DRUGS (2)
  1. AVONEX [Suspect]
     Indication: MULTIPLE SCLEROSIS
     Route: 030
     Dates: start: 20060307
  2. AVONEX [Suspect]
     Route: 030
     Dates: start: 20120606

REACTIONS (3)
  - UNDERDOSE [None]
  - NEEDLE ISSUE [None]
  - DYSPHONIA [None]
